FAERS Safety Report 9111972 (Version 1)
Quarter: 2013Q1

REPORT INFORMATION
  Report Type: Spontaneous
  Country: US (occurrence: US)
  Receive Date: 20130219
  Receipt Date: 20130219
  Transmission Date: 20140127
  Serious: No
  Sender: FDA-Public Use
  Company Number: US-BRISTOL-MYERS SQUIBB COMPANY-16671976

PATIENT
  Sex: Male

DRUGS (1)
  1. ORENCIA [Suspect]
     Dosage: INITIALLY IV, THEN STARTED SC ON UNK DATE DAY 1 AND WEEK 2, AGIAN SWITCHED TO IV ORENCIA 750MG
     Route: 058

REACTIONS (1)
  - Chest pain [Recovered/Resolved]
